FAERS Safety Report 9435925 (Version 4)
Quarter: 2013Q4

REPORT INFORMATION
  Report Type: Spontaneous
  Country: GB (occurrence: GB)
  Receive Date: 20130801
  Receipt Date: 20131220
  Transmission Date: 20140711
  Serious: Yes (Other)
  Sender: FDA-Public Use
  Company Number: GB-BAXTER-2013BAX029808

PATIENT
  Sex: Male

DRUGS (4)
  1. ADVATE 250 IU POWDER AND SOLVENT FOR SOLUTION FOR INJECTION [Suspect]
     Indication: HAEMOPHILIA
     Route: 065
     Dates: start: 201102
  2. ADVATE 250 IU POWDER AND SOLVENT FOR SOLUTION FOR INJECTION [Suspect]
     Route: 065
     Dates: start: 201307, end: 201307
  3. ADVATE 500 IU POWDER AND SOLVENT FOR SOLUTION FOR INJECTION [Suspect]
     Indication: HAEMOPHILIA
     Route: 065
     Dates: start: 201102
  4. ADVATE 500 IU POWDER AND SOLVENT FOR SOLUTION FOR INJECTION [Suspect]
     Route: 065
     Dates: start: 201307, end: 201307

REACTIONS (1)
  - Abdominal discomfort [Unknown]
